FAERS Safety Report 5874637-7 (Version None)
Quarter: 2008Q3

REPORT INFORMATION
  Report Type: 
  Country: None (occurrence: None)
  Receive Date: 20080829
  Receipt Date: 20061115
  Transmission Date: 20090109
  Serious: Yes (Other)
  Sender: FDA-Public Use
  Company Number: 2008S1011212

PATIENT
  Age: 46 Year
  Sex: Male

DRUGS (5)
  1. CLARITHROMYCIN [Suspect]
     Indication: HELICOBACTER INFECTION
     Dosage: 250 MG; ORAL; 500 MG; ORAL
     Route: 048
     Dates: start: 20061012, end: 20061017
  2. CLARITHROMYCIN [Suspect]
     Indication: HELICOBACTER INFECTION
     Dosage: 250 MG; ORAL; 500 MG; ORAL
     Route: 048
     Dates: start: 20061012, end: 20061018
  3. CLARITHROMYCIN [Suspect]
     Indication: HELICOBACTER INFECTION
     Dosage: 250 MG; ORAL; 500 MG; ORAL
     Route: 048
     Dates: start: 20061017, end: 20061018
  4. CITALOPRAM HYDROBROMIDE [Concomitant]
  5. LANSOPRAZOLE [Concomitant]

REACTIONS (1)
  - RHABDOMYOLYSIS [None]
